FAERS Safety Report 9519977 (Version 1)
Quarter: 2013Q1

REPORT INFORMATION
  Report Type: Spontaneous
  Country: US (occurrence: None)
  Receive Date: 20130305
  Receipt Date: 20130305
  Transmission Date: 20140127
  Serious: Yes (Hospitalization)
  Sender: FDA-Public Use
  Company Number: 163-21880-12091013

PATIENT
  Age: 66 Year
  Sex: Female
  Weight: 85.28 kg

DRUGS (8)
  1. REVLIMID [Suspect]
     Indication: PLASMA CELL MYELOMA
     Dosage: 25 MG, 21 IN 21 D, PO
     Route: 048
     Dates: start: 20120618, end: 20120906
  2. PERCOCET (OXYCOCET) (UNKNOWN) [Concomitant]
  3. ULTRACET (ULTRACET) (UNKNOWN) [Concomitant]
  4. METOPROLOL (METOPROLOL) (UNKNOWN) [Concomitant]
  5. PRILOSEC (OMEPRAZOLE) (UNKNOWN) [Concomitant]
  6. AMBIEN (ZOLPIDEM TARTRATE) (UNKNOWN) [Concomitant]
  7. SYNTHROID (LEVOTHYROXINE SODIUM) (UNKNOWN) [Concomitant]
  8. ZITHROMAX (AZITHROMYCIN) (UNKNOWN) [Concomitant]

REACTIONS (3)
  - Salmonellosis [None]
  - Thrombosis [None]
  - Adverse drug reaction [None]
